FAERS Safety Report 5636465-7 (Version None)
Quarter: 2008Q1

REPORT INFORMATION
  Report Type: 
  Country: None (occurrence: None)
  Receive Date: 20080220
  Receipt Date: 20080207
  Transmission Date: 20080703
  Serious: Yes (Hospitalization)
  Sender: FDA-Public Use
  Company Number: 8029854

PATIENT
  Age: 76 Year
  Sex: Female

DRUGS (2)
  1. KEPPRA [Suspect]
     Indication: EPILEPSY
     Dosage: 2500 MG/D
  2. CARBAMAZEPINE [Concomitant]

REACTIONS (1)
  - NEUTROPENIA [None]
